FAERS Safety Report 4354378-8 (Version None)
Quarter: 2004Q2

REPORT INFORMATION
  Report Type: 
  Country: None (occurrence: None)
  Receive Date: 20040503
  Receipt Date: 20040423
  Transmission Date: 20050107
  Serious: Yes (Hospitalization)
  Sender: FDA-Public Use
  Company Number: 200403638

PATIENT
  Age: 21 Year
  Sex: Male

DRUGS (1)
  1. ACETAMINOPHEN [Suspect]
     Indication: SUICIDE ATTEMPT
     Dosage: 120 PILLS
     Dates: start: 20040415

REACTIONS (4)
  - COMA [None]
  - INTENTIONAL OVERDOSE [None]
  - PALLOR [None]
  - SUICIDE ATTEMPT [None]
